FAERS Safety Report 13253154 (Version 3)
Quarter: 2018Q2

REPORT INFORMATION
  Report Type: Spontaneous
  Country: US (occurrence: US)
  Receive Date: 20170220
  Receipt Date: 20180607
  Transmission Date: 20180711
  Serious: Yes (Death)
  Sender: FDA-Public Use
  Company Number: US-ACADIA PHARMACEUTICALS INC.-ACA-2016-001503

PATIENT
  Age: 75 Year
  Sex: Male
  Weight: 75 kg

DRUGS (21)
  1. ROPINIROLE. [Concomitant]
     Active Substance: ROPINIROLE
     Indication: PARKINSON^S DISEASE
     Dosage: 0.25 MG, QID
     Route: 065
     Dates: start: 20111026
  2. VITAMIN D3 [Concomitant]
     Active Substance: CHOLECALCIFEROL
     Indication: VITAMIN D DEFICIENCY
     Dosage: 1000 UNITS QD
     Route: 065
     Dates: start: 20120516
  3. CARBIDOPA/LEVODOPA [Concomitant]
     Active Substance: CARBIDOPA\LEVODOPA
     Indication: PARKINSON^S DISEASE
     Dosage: 25/100, 1, BID
     Route: 065
     Dates: start: 20140428
  4. POTASSIUM [Concomitant]
     Active Substance: POTASSIUM
     Indication: PRODUCT USED FOR UNKNOWN INDICATION
     Dosage: UNK, QD
     Route: 065
  5. VITAMIN C [Concomitant]
     Active Substance: ASCORBIC ACID
     Indication: ROUTINE HEALTH MAINTENANCE
     Dosage: 500 MG, QD
  6. CALCIUM VITAMIN D [Concomitant]
     Active Substance: CALCIUM\VITAMIN D
     Indication: HIP FRACTURE
     Dosage: 600- 400 MG, QD
     Route: 065
     Dates: start: 20151210
  7. NUPLAZID [Suspect]
     Active Substance: PIMAVANSERIN TARTRATE
     Indication: HALLUCINATION
     Dosage: 34 MG, QD
     Route: 048
     Dates: start: 20160830
  8. NUPLAZID [Suspect]
     Active Substance: PIMAVANSERIN TARTRATE
     Indication: PARKINSON^S DISEASE PSYCHOSIS
  9. FINASTERIDE. [Concomitant]
     Active Substance: FINASTERIDE
     Indication: URINARY RETENTION
  10. FLUDROCORTISONE [Concomitant]
     Active Substance: FLUDROCORTISONE
     Indication: ORTHOSTATIC HYPOTENSION
     Dosage: 0.1 MG, QD
     Route: 065
     Dates: start: 20150824
  11. VITAMINS NOS [Concomitant]
     Active Substance: VITAMINS
     Indication: HIP FRACTURE
     Dosage: 1 TABLET DAILY
     Route: 065
     Dates: start: 20151012
  12. ASA [Concomitant]
     Active Substance: ASPIRIN
     Indication: TRANSIENT ISCHAEMIC ATTACK
     Dosage: 81 MG, 1 TABLET DAILY AS DIRECTED
     Route: 065
     Dates: start: 20160111
  13. PROBIOTIC [Concomitant]
     Active Substance: PROBIOTICS NOS
     Indication: ROUTINE HEALTH MAINTENANCE
     Dosage: UNK, QD
     Route: 048
     Dates: start: 20170105
  14. DIGOXIN. [Concomitant]
     Active Substance: DIGOXIN
     Indication: ATRIAL FIBRILLATION
     Dosage: 125 MCG QOD
     Route: 065
     Dates: start: 20150824
  15. CRANBERRY. [Concomitant]
     Active Substance: CRANBERRY
     Indication: ROUTINE HEALTH MAINTENANCE
     Dosage: 15000 MG, QD
  16. VITAMIN E [Concomitant]
     Active Substance: .ALPHA.-TOCOPHEROL
     Indication: ROUTINE HEALTH MAINTENANCE
     Dosage: UNK, QD
  17. MIDODRINE HCL [Concomitant]
     Active Substance: MIDODRINE HYDROCHLORIDE
     Indication: ORTHOSTATIC HYPOTENSION
     Dosage: 5 MG, 1/2 TABLET TWICE DAILY
     Route: 065
     Dates: start: 20151210
  18. LAMOTRIGINE. [Concomitant]
     Active Substance: LAMOTRIGINE
     Indication: FOCAL DYSCOGNITIVE SEIZURES
     Dosage: 25 MG, BID
     Route: 065
  19. NUPLAZID [Suspect]
     Active Substance: PIMAVANSERIN TARTRATE
     Indication: DELUSION
  20. LAMOTRIGINE. [Concomitant]
     Active Substance: LAMOTRIGINE
     Indication: SEIZURE
  21. FINASTERIDE. [Concomitant]
     Active Substance: FINASTERIDE
     Indication: BENIGN PROSTATIC HYPERPLASIA
     Dosage: 5 MG, QD
     Route: 048
     Dates: start: 20170911

REACTIONS (3)
  - Drug ineffective [Unknown]
  - Hallucination [Unknown]
  - Parkinson^s disease [Fatal]

NARRATIVE: CASE EVENT DATE: 201309
